FAERS Safety Report 18709222 (Version 1)
Quarter: 2021Q1

REPORT INFORMATION
  Report Type: Spontaneous
  Country: JP (occurrence: JP)
  Receive Date: 20210106
  Receipt Date: 20210106
  Transmission Date: 20210419
  Serious: Yes (Hospitalization)
  Sender: FDA-Public Use
  Company Number: JP-DSJP-DSJ-2021-100061

PATIENT
  Age: 83 Year
  Sex: Female

DRUGS (1)
  1. LIXIANA OD TABLETS 30MG [Suspect]
     Active Substance: EDOXABAN TOSYLATE
     Indication: EMBOLISM VENOUS
     Dosage: 30 MG, QD
     Route: 048

REACTIONS (1)
  - Diabetes mellitus [Not Recovered/Not Resolved]
